FAERS Safety Report 8392789-4 (Version None)
Quarter: 2012Q2

REPORT INFORMATION
  Report Type: 
  Country: None (occurrence: None)
  Receive Date: 20120529
  Receipt Date: 20120524
  Transmission Date: 20120825
  Serious: Yes (Other)
  Sender: FDA-Public Use
  Company Number: DE-BAYER-2012-051759

PATIENT
  Age: 37 Year
  Sex: Female

DRUGS (1)
  1. ESTRADIOL VALERATE/DIENOGEST [Suspect]
     Dosage: UNK
     Route: 048
     Dates: start: 20120401, end: 20120523

REACTIONS (5)
  - PANIC ATTACK [None]
  - MENTAL DISORDER [None]
  - HYPOAESTHESIA [None]
  - VERTIGO [None]
  - PAIN IN EXTREMITY [None]
